FAERS Safety Report 13854393 (Version 1)
Quarter: 2017Q3

REPORT INFORMATION
  Report Type: Spontaneous
  Country: US (occurrence: US)
  Receive Date: 20170810
  Receipt Date: 20170810
  Transmission Date: 20171127
  Serious: No
  Sender: FDA-Public Use
  Company Number: None

PATIENT

DRUGS (2)
  1. METFORMIN HCL [Suspect]
     Active Substance: METFORMIN HYDROCHLORIDE
     Route: 048
  2. GABAPENTIN. [Suspect]
     Active Substance: GABAPENTIN

REACTIONS (6)
  - Wrong drug administered [None]
  - Oedema [None]
  - Vision blurred [None]
  - Drug dispensing error [None]
  - Pain [None]
  - Blood glucose increased [None]
